FAERS Safety Report 5380711-4 (Version None)
Quarter: 2007Q3

REPORT INFORMATION
  Report Type: 
  Country: None (occurrence: None)
  Receive Date: 20070706
  Receipt Date: 20060602
  Transmission Date: 20080115
  Serious: Yes (Other)
  Sender: FDA-Public Use
  Company Number: US-ASTRAZENECA-2006UW11538

PATIENT
  Age: 672 Month
  Sex: Female
  Weight: 80.9 kg

DRUGS (4)
  1. SEROQUEL [Suspect]
     Route: 048
     Dates: start: 20040301, end: 20040601
  2. HALDOL [Concomitant]
     Route: 048
     Dates: start: 20020901
  3. RISPERDAL [Concomitant]
     Route: 048
     Dates: start: 20050701
  4. ZYPREXA [Concomitant]
     Route: 048

REACTIONS (3)
  - HYPERGLYCAEMIA [None]
  - MULTIPLE FRACTURES [None]
  - OPEN WOUND [None]
